FAERS Safety Report 9083826 (Version 1)
Quarter: 2013Q1

REPORT INFORMATION
  Report Type: Spontaneous
  Country: IT (occurrence: IT)
  Receive Date: 20130131
  Receipt Date: 20130131
  Transmission Date: 20140127
  Serious: Yes (Hospitalization)
  Sender: FDA-Public Use
  Company Number: IT-BAYER-2013-010896

PATIENT
  Age: 82 Year
  Sex: Female

DRUGS (3)
  1. CARDIOASPIRIN [Suspect]
     Dosage: 100 MG, QD
     Route: 048
     Dates: start: 19860101
  2. LANSOPRAZOLE [Concomitant]
     Indication: PROPHYLAXIS AGAINST GASTROINTESTINAL ULCER
     Route: 048
  3. LEVOSULPIRIDE [Concomitant]

REACTIONS (4)
  - Cerebral haemorrhage [Unknown]
  - Coma [Unknown]
  - Hemiplegia [Unknown]
  - Loss of consciousness [Unknown]
